FAERS Safety Report 9099515 (Version 1)
Quarter: 2013Q1

REPORT INFORMATION
  Report Type: Spontaneous
  Country: US (occurrence: US)
  Receive Date: 20130214
  Receipt Date: 20130214
  Transmission Date: 20140127
  Serious: Yes (Hospitalization)
  Sender: FDA-Public Use
  Company Number: US-MYLANLABS-2013S1002444

PATIENT
  Sex: Male

DRUGS (2)
  1. METFORMIN HYDROCHLORIDE [Suspect]
     Indication: BLOOD GLUCOSE
  2. GLIPIZIDE [Suspect]
     Indication: BLOOD GLUCOSE

REACTIONS (1)
  - Blood glucose fluctuation [Not Recovered/Not Resolved]
